FAERS Safety Report 12427272 (Version 2)
Quarter: 2016Q4

REPORT INFORMATION
  Report Type: Report from Study
  Country: GB (occurrence: GB)
  Receive Date: 20160602
  Receipt Date: 20161025
  Transmission Date: 20170207
  Serious: Yes (Other)
  Sender: FDA-Public Use
  Company Number: GB-UCBSA-2016019932

PATIENT

DRUGS (1)
  1. CERTOLIZUMAB PEGOL [Suspect]
     Active Substance: CERTOLIZUMAB PEGOL
     Indication: PRODUCT USED FOR UNKNOWN INDICATION
     Dosage: UNK

REACTIONS (6)
  - Influenza [Unknown]
  - Pharyngitis [Unknown]
  - Delirium febrile [Unknown]
  - Unevaluable event [Unknown]
  - Adverse drug reaction [Unknown]
  - Lower respiratory tract infection [Unknown]
